FAERS Safety Report 8523390-7 (Version None)
Quarter: 2012Q3

REPORT INFORMATION
  Report Type: 
  Country: None (occurrence: None)
  Receive Date: 20120712
  Receipt Date: 20120712
  Transmission Date: 20120928
  Serious: Yes (Hospitalization)
  Sender: FDA-Public Use
  Company Number: None

PATIENT
  Age: 52 Year
  Sex: Male
  Weight: 74 kg

DRUGS (1)
  1. SORAFENIB [Suspect]
     Dosage: 400 MG BID PO
     Route: 048
     Dates: start: 20111021, end: 20111116

REACTIONS (2)
  - NAUSEA [None]
  - VOMITING [None]
